FAERS Safety Report 4781079-4 (Version None)
Quarter: 2005Q3

REPORT INFORMATION
  Report Type: 
  Country: None (occurrence: None)
  Receive Date: 20050928
  Receipt Date: 20050916
  Transmission Date: 20060218
  Serious: Yes (Other)
  Sender: FDA-Public Use
  Company Number: US-JNJFOC-20050901406

PATIENT
  Sex: Male
  Weight: 66.68 kg

DRUGS (9)
  1. REMICADE [Suspect]
     Route: 042
  2. REMICADE [Suspect]
     Indication: CROHN'S DISEASE
     Route: 042
  3. ASACOL [Concomitant]
  4. IMURAN [Concomitant]
  5. FLAGYL [Concomitant]
  6. PENTASA [Concomitant]
  7. FOLIC ACID [Concomitant]
  8. DEPAKOTE [Concomitant]
     Dosage: 500 MG - (1 1/2AM AND 2PM)
  9. VITAMIN [Concomitant]

REACTIONS (3)
  - ASCITES [None]
  - BLOOD ALBUMIN DECREASED [None]
  - BLOOD CREATININE INCREASED [None]
